FAERS Safety Report 20423127 (Version 1)
Quarter: 2022Q1

REPORT INFORMATION
  Report Type: Report from Study
  Country: CA (occurrence: CA)
  Receive Date: 20220203
  Receipt Date: 20220203
  Transmission Date: 20220424
  Serious: Yes (Hospitalization, Other)
  Sender: FDA-Public Use
  Company Number: CA-PFIZER INC-202200139221

PATIENT
  Age: 59 Year
  Sex: Female
  Weight: 86 kg

DRUGS (6)
  1. SPIRONOLACTONE [Suspect]
     Active Substance: SPIRONOLACTONE
     Indication: Cardiac failure congestive
     Dosage: 25 MG, 1X/DAY
     Route: 048
  2. FUROSEMIDE [Suspect]
     Active Substance: FUROSEMIDE
     Indication: Cardiac failure congestive
     Dosage: 40 MG, 1X/DAY
     Route: 048
  3. REMICADE [Suspect]
     Active Substance: INFLIXIMAB
     Indication: Crohn^s disease
     Dosage: 1 EVERY 8 WEEKS
     Route: 042
  4. SACUBITRIL\VALSARTAN [Suspect]
     Active Substance: SACUBITRIL\VALSARTAN
     Indication: Cardiac failure congestive
     Dosage: 1 EVERY 2 DAYS
     Route: 048
  5. SACUBITRIL\VALSARTAN [Suspect]
     Active Substance: SACUBITRIL\VALSARTAN
     Dosage: 1 EVERY 2 DAYS
     Route: 048
  6. SACUBITRIL\VALSARTAN [Suspect]
     Active Substance: SACUBITRIL\VALSARTAN
     Dosage: 1 EVERY 2 DAYS
     Route: 048

REACTIONS (8)
  - Cardiac failure congestive [Unknown]
  - Dizziness [Unknown]
  - Balance disorder [Unknown]
  - Contusion [Unknown]
  - Fall [Unknown]
  - Pain [Unknown]
  - Pneumonia [Unknown]
  - Rheumatoid arthritis [Unknown]
